FAERS Safety Report 6991681-7 (Version None)
Quarter: 2010Q3

REPORT INFORMATION
  Report Type: 
  Country: None (occurrence: None)
  Receive Date: 20100917
  Receipt Date: 20100903
  Transmission Date: 20110219
  Serious: Yes (Other)
  Sender: FDA-Public Use
  Company Number: PHHY2010US56458

PATIENT
  Sex: Female
  Weight: 154 kg

DRUGS (8)
  1. RECLAST [Suspect]
     Indication: OSTEOPOROSIS
     Dosage: 5 MG, UNK
     Route: 042
     Dates: start: 20090820, end: 20090820
  2. RECLAST [Suspect]
     Dosage: 5 MG/100 ML
     Route: 042
     Dates: start: 20100823, end: 20100823
  3. THYROID THERAPY [Suspect]
     Dosage: 1.25 UNK, UNK
  4. CALCIUM [Concomitant]
  5. LIPITOR [Concomitant]
     Dosage: 10 MG
  6. PRILOSEC [Concomitant]
     Dosage: 40 MG
  7. CLARITIN [Concomitant]
     Dosage: 10 MG
  8. XANAX [Concomitant]
     Dosage: 0.5 MG, PRN

REACTIONS (12)
  - ANXIETY [None]
  - ARTHRALGIA [None]
  - BACK PAIN [None]
  - CHILLS [None]
  - FEELING COLD [None]
  - GAIT DISTURBANCE [None]
  - MUSCULAR WEAKNESS [None]
  - MUSCULOSKELETAL PAIN [None]
  - NAUSEA [None]
  - PAIN [None]
  - PAIN IN EXTREMITY [None]
  - SLEEP DISORDER [None]
